FAERS Safety Report 10302820 (Version 1)
Quarter: 2014Q3

REPORT INFORMATION
  Report Type: Spontaneous
  Country: CN (occurrence: CN)
  Receive Date: 20140714
  Receipt Date: 20140714
  Transmission Date: 20150326
  Serious: Yes (Death)
  Sender: FDA-Public Use
  Company Number: CN-GLAXOSMITHKLINE-B1013201A

PATIENT
  Age: 66 Year
  Sex: Female
  Weight: 71 kg

DRUGS (3)
  1. TCM [Suspect]
     Active Substance: HERBALS
     Indication: ILL-DEFINED DISORDER
     Route: 065
  2. ZINACEF [Suspect]
     Active Substance: CEFUROXIME SODIUM
     Indication: LUNG INFECTION
     Dosage: 1.5G PER DAY
     Route: 042
     Dates: start: 20140106, end: 20140107
  3. DOXOFYLLINE [Suspect]
     Active Substance: DOXOFYLLINE
     Indication: ILL-DEFINED DISORDER
     Route: 065

REACTIONS (22)
  - Pallor [Unknown]
  - Foaming at mouth [Unknown]
  - Aspartate aminotransferase increased [None]
  - Red blood cell count decreased [None]
  - Cardiac arrest [Fatal]
  - Dyspnoea [Unknown]
  - Base excess decreased [None]
  - White blood cell count increased [None]
  - Haemoglobin decreased [None]
  - PCO2 increased [None]
  - Blood chloride decreased [None]
  - Neutrophil count increased [None]
  - Blood pH decreased [None]
  - Alanine aminotransferase increased [None]
  - Heart rate decreased [Unknown]
  - Prothrombin time prolonged [None]
  - Blood calcium decreased [None]
  - Activated partial thromboplastin time prolonged [None]
  - PO2 decreased [None]
  - Blood sodium decreased [None]
  - Blood bilirubin increased [None]
  - Bilirubin conjugated increased [None]

NARRATIVE: CASE EVENT DATE: 20140107
